FAERS Safety Report 7240771-2 (Version None)
Quarter: 2011Q1

REPORT INFORMATION
  Report Type: 
  Country: None (occurrence: None)
  Receive Date: 20110124
  Receipt Date: 20110119
  Transmission Date: 20110831
  Serious: No
  Sender: FDA-Public Use
  Company Number: US-TEVA-263965USA

PATIENT
  Sex: Female
  Weight: 56.75 kg

DRUGS (1)
  1. ALBUTEROL SULFATE AUTOHALER [Suspect]
     Dosage: BID TO TID
     Route: 055
     Dates: start: 20110107, end: 20110114

REACTIONS (4)
  - TACHYCARDIA [None]
  - BLOOD PRESSURE INCREASED [None]
  - PULSE PRESSURE DECREASED [None]
  - HEART RATE IRREGULAR [None]
